FAERS Safety Report 8551451-5 (Version None)
Quarter: 2012Q3

REPORT INFORMATION
  Report Type: 
  Country: None (occurrence: None)
  Receive Date: 20120730
  Receipt Date: 20120123
  Transmission Date: 20120928
  Serious: No
  Sender: FDA-Public Use
  Company Number: US-ALLERGAN-1200719US

PATIENT
  Age: 68 Year
  Sex: Female

DRUGS (1)
  1. LUMIGAN [Suspect]
     Indication: GLAUCOMA
     Dosage: 2 GTT, QPM
     Route: 047

REACTIONS (4)
  - ASTHENOPIA [None]
  - SCLERAL HYPERAEMIA [None]
  - EYELID DISORDER [None]
  - EYE IRRITATION [None]
